FAERS Safety Report 8359355-8 (Version None)
Quarter: 2012Q2

REPORT INFORMATION
  Report Type: 
  Country: None (occurrence: None)
  Receive Date: 20120515
  Receipt Date: 20120510
  Transmission Date: 20120825
  Serious: No
  Sender: FDA-Public Use
  Company Number: US-PFIZER INC-2012114430

PATIENT
  Sex: Female

DRUGS (1)
  1. RAPAMUNE [Suspect]
     Dosage: 2 MG, UNK

REACTIONS (5)
  - RASH [None]
  - MOUTH ULCERATION [None]
  - HEADACHE [None]
  - DIARRHOEA [None]
  - OEDEMA [None]
